FAERS Safety Report 5978911-5 (Version None)
Quarter: 2008Q4

REPORT INFORMATION
  Report Type: 
  Country: None (occurrence: None)
  Receive Date: 20081128
  Receipt Date: 20081016
  Transmission Date: 20090506
  Serious: Yes (Hospitalization)
  Sender: FDA-Public Use
  Company Number: 2008S1011378

PATIENT
  Age: 64 Year
  Sex: Female

DRUGS (3)
  1. PHOSPHOSODA FLAVOR NOT SPECIFIED (SODIUM PHOSPHATE DIBASIC/SODIUM PHOS [Suspect]
     Indication: COLONOSCOPY
     Dosage: 90 ML; 169; PO
     Route: 048
     Dates: start: 20080916, end: 20080916
  2. DIURETICS (DIURETICS) [Concomitant]
  3. ANGIOTENSIN II ANTAGONIST (ANGIOTENSINS II ANTAGONISTS) [Concomitant]

REACTIONS (3)
  - BLOOD PARATHYROID HORMONE INCREASED [None]
  - RENAL FAILURE ACUTE [None]
  - RENAL TUBULAR DISORDER [None]
